FAERS Safety Report 7643465-4 (Version None)
Quarter: 2011Q3

REPORT INFORMATION
  Report Type: 
  Country: None (occurrence: None)
  Receive Date: 20110729
  Receipt Date: 20110718
  Transmission Date: 20111222
  Serious: Yes (Other)
  Sender: FDA-Public Use
  Company Number: DE-JNJFOC-20110711214

PATIENT
  Sex: Female

DRUGS (2)
  1. TAPENTADOL [Suspect]
     Indication: PAIN
     Route: 048
     Dates: start: 20110701
  2. PALLADONE [Suspect]
     Indication: PAIN
     Route: 048

REACTIONS (8)
  - BLOOD PRESSURE FLUCTUATION [None]
  - DIZZINESS [None]
  - FATIGUE [None]
  - NAUSEA [None]
  - HEADACHE [None]
  - DRUG WITHDRAWAL SYNDROME [None]
  - PAIN IN EXTREMITY [None]
  - TREMOR [None]
